FAERS Safety Report 5279295-0 (Version None)
Quarter: 2007Q1

REPORT INFORMATION
  Report Type: 
  Country: None (occurrence: None)
  Receive Date: 20070328
  Receipt Date: 20060525
  Transmission Date: 20070707
  Serious: Yes (Hospitalization)
  Sender: FDA-Public Use
  Company Number: US-AMGEN-US181188

PATIENT
  Age: 32 Year
  Sex: Female

DRUGS (6)
  1. NEULASTA [Suspect]
     Indication: CHEMOTHERAPY
     Route: 058
  2. RADIATION THERAPY [Suspect]
  3. DOXORUBICIN HYDROCHLORIDE [Concomitant]
     Route: 065
  4. CYCLOPHOSPHAMIDE [Concomitant]
     Route: 065
  5. DOCETAXEL [Concomitant]
     Route: 065
  6. TAMOXIFEN CITRATE [Concomitant]

REACTIONS (1)
  - FEBRILE NEUTROPENIA [None]
